FAERS Safety Report 4964747-0 (Version None)
Quarter: 2006Q1

REPORT INFORMATION
  Report Type: 
  Country: None (occurrence: None)
  Receive Date: 20060331
  Receipt Date: 20060314
  Transmission Date: 20060701
  Serious: Yes (Hospitalization)
  Sender: FDA-Public Use
  Company Number: FR200602000092

PATIENT
  Age: 65 Year
  Sex: Female

DRUGS (13)
  1. FORTEO [Suspect]
     Indication: OSTEOPOROSIS
     Dosage: SEE IMAGE
     Dates: start: 20050214, end: 20051226
  2. FORTEO [Suspect]
     Indication: OSTEOPOROSIS
     Dosage: SEE IMAGE
     Dates: start: 20051229
  3. FORTEO [Concomitant]
  4. PLAVIX [Concomitant]
  5. DILTIAZEM HCL [Concomitant]
  6. NOVATREX (METHOTREXATE) [Concomitant]
  7. LIPANOR (CIPROFIBRATE) [Concomitant]
  8. PREDNISONE TAB [Concomitant]
  9. POTASSIUM CHLORIDE [Concomitant]
  10. PULMICORT [Concomitant]
  11. COMBIVENT [Concomitant]
  12. FORADIL [Concomitant]
  13. DAFLON (DIOSMIN) [Concomitant]

REACTIONS (3)
  - HYPERHIDROSIS [None]
  - PALPITATIONS [None]
  - POLYURIA [None]
